FAERS Safety Report 13426377 (Version 1)
Quarter: 2017Q2

REPORT INFORMATION
  Report Type: Spontaneous
  Country: CH (occurrence: CH)
  Receive Date: 20170411
  Receipt Date: 20170411
  Transmission Date: 20170830
  Serious: Yes (Other)
  Sender: FDA-Public Use
  Company Number: CH-STRIDES ARCOLAB LIMITED-2017SP006193

PATIENT

DRUGS (5)
  1. IMIQUIMOD. [Suspect]
     Active Substance: IMIQUIMOD
     Dosage: 5 %, QD
     Route: 061
  2. IMIQUIMOD. [Suspect]
     Active Substance: IMIQUIMOD
     Indication: ACTINIC CHEILITIS
     Dosage: 5 %, THRICE  A WEEK
     Route: 061
  3. INGENOL MEBUTATE [Concomitant]
     Active Substance: INGENOL MEBUTATE
     Dosage: 150 ?G/G, ADDITIONAL CYCLE FOR 3 CONSECUTIVE DAYS
     Route: 061
  4. INGENOL MEBUTATE [Concomitant]
     Active Substance: INGENOL MEBUTATE
     Indication: ACTINIC CHEILITIS
     Dosage: 150 ?G/G, FOR 3 CONSECUTIVE DAYS
     Route: 061
  5. INGENOL MEBUTATE [Concomitant]
     Active Substance: INGENOL MEBUTATE
     Dosage: 150 ?G/G, ADDITIONAL CYCLE FOR 3 CONSECUTIVE DAYS
     Route: 061

REACTIONS (2)
  - Off label use [Unknown]
  - Drug ineffective for unapproved indication [Unknown]
